FAERS Safety Report 14475435 (Version 3)
Quarter: 2018Q2

REPORT INFORMATION
  Report Type: Spontaneous
  Country: CA (occurrence: CA)
  Receive Date: 20180201
  Receipt Date: 20180516
  Transmission Date: 20180711
  Serious: Yes (Other)
  Sender: FDA-Public Use
  Company Number: CA-CELLTRION INC.-2017CA005089

PATIENT

DRUGS (30)
  1. TOUJEO [Concomitant]
     Active Substance: INSULIN GLARGINE
     Dosage: UNK
  2. GLUCOSE [Concomitant]
     Active Substance: DEXTROSE
     Dosage: UNK
  3. MYLAN BUPROPION [Concomitant]
     Dosage: 300 MG, DAILY
     Route: 048
     Dates: start: 201609
  4. EPIPEN [Concomitant]
     Active Substance: EPINEPHRINE
     Dosage: UNK
  5. INFLECTRA [Suspect]
     Active Substance: INFLIXIMAB-DYYB
     Dosage: 728 MG, CYCLIC
     Route: 042
     Dates: start: 20171212
  6. INFLECTRA [Suspect]
     Active Substance: INFLIXIMAB-DYYB
     Dosage: 5 MG/KG, EVERY 6 WEEKS
     Route: 042
     Dates: start: 20170412
  7. COVERSYL PLUS                      /01421201/ [Concomitant]
     Active Substance: INDAPAMIDE\PERINDOPRIL ERBUMINE
     Dosage: 2.5 MG, DAILY
     Route: 048
  8. ROSUVASTATIN CALCIUM. [Concomitant]
     Active Substance: ROSUVASTATIN CALCIUM
     Dosage: 20 MG, DAILY
     Route: 048
  9. DIFLUCAN [Concomitant]
     Active Substance: FLUCONAZOLE
     Dosage: UNK
  10. FUCIDIN H                          /00524501/ [Concomitant]
     Dosage: UNK
  11. ALIGN [Concomitant]
     Active Substance: BIFIDOBACTERIUM LONGUM SUBSP. INFANTIS
     Dosage: UNK
  12. BETADERM                           /00008501/ [Concomitant]
     Dosage: UNK
  13. CRESTOR [Concomitant]
     Active Substance: ROSUVASTATIN CALCIUM
     Dosage: 20 MG, UNK
  14. CANAGLIFLOZIN [Concomitant]
     Active Substance: CANAGLIFLOZIN
     Dosage: UNK
  15. IBUPROFEN. [Concomitant]
     Active Substance: IBUPROFEN
     Dosage: 200 MG, UNK
  16. JANUVIA [Concomitant]
     Active Substance: SITAGLIPTIN PHOSPHATE
     Dosage: 100 MG, UNK
  17. INFLECTRA [Suspect]
     Active Substance: INFLIXIMAB-DYYB
     Indication: PSORIATIC ARTHROPATHY
     Dosage: 500 MG, CYCLIC ( 0,2,6 WEEKS, THEN EVERY 6 WEEKS FOR 12 MONTHS)
     Route: 042
     Dates: start: 20170623, end: 20171030
  18. INFLECTRA [Suspect]
     Active Substance: INFLIXIMAB-DYYB
     Dosage: 728 MG, CYCLIC (EVERY 6 WEEKS)
     Route: 042
     Dates: start: 20180123
  19. CLOTRIMAZOLE. [Concomitant]
     Active Substance: CLOTRIMAZOLE
     Dosage: 1 %, UNK
  20. LAMISIL [Concomitant]
     Active Substance: TERBINAFINE HYDROCHLORIDE
     Dosage: UNK
  21. ASA EC [Concomitant]
     Active Substance: ASPIRIN
     Dosage: UNK
  22. SALAZOPYRIN [Concomitant]
     Active Substance: SULFASALAZINE
     Dosage: 1 G, BID(4 DOSE FORMS (500 MG) TOTAL 2 G)
     Route: 048
     Dates: start: 20160414
  23. NICOTINE. [Concomitant]
     Active Substance: NICOTINE
     Dosage: UNK
  24. BACTROBAN [Concomitant]
     Active Substance: MUPIROCIN\MUPIROCIN CALCIUM
     Dosage: UNK
  25. WELLBUTRIN [Concomitant]
     Active Substance: BUPROPION HYDROCHLORIDE
     Dosage: UNK
  26. TUBERSOL [Concomitant]
     Active Substance: TUBERCULIN PURIFIED PROTEIN DERIVATIVE
     Dosage: UNK
  27. LEFLUNOMIDE SANDOZ [Concomitant]
     Active Substance: LEFLUNOMIDE
     Dosage: 20 MG DAILY
     Dates: start: 20160331
  28. DOVONEX [Concomitant]
     Active Substance: CALCIPOTRIENE
     Dosage: 0.05 %, UNK
  29. CLINDAMYCIN. [Concomitant]
     Active Substance: CLINDAMYCIN
     Dosage: UNK
  30. LEVEMIR [Concomitant]
     Active Substance: INSULIN DETEMIR
     Dosage: UNK

REACTIONS (8)
  - Ulcer [Unknown]
  - Drug ineffective [Unknown]
  - Peripheral swelling [Recovered/Resolved]
  - Blood pressure fluctuation [Unknown]
  - Nasopharyngitis [Unknown]
  - Drug prescribing error [Unknown]
  - Skin infection [Unknown]
  - Erythema [Recovering/Resolving]

NARRATIVE: CASE EVENT DATE: 201707
